FAERS Safety Report 4953353-X (Version None)
Quarter: 2006Q1

REPORT INFORMATION
  Report Type: 
  Country: None (occurrence: None)
  Receive Date: 20060324
  Receipt Date: 20060314
  Transmission Date: 20060701
  Serious: Yes (Hospitalization, Other)
  Sender: FDA-Public Use
  Company Number: US-JNJFOC-20060304737

PATIENT
  Sex: Male

DRUGS (5)
  1. TRAMADOL HCL [Suspect]
     Indication: DRUG USE FOR UNKNOWN INDICATION
  2. COUGH SYRUP [Interacting]
  3. COUGH SYRUP [Interacting]
  4. COUGH SYRUP [Interacting]
     Indication: DRUG USE FOR UNKNOWN INDICATION
  5. LEXAPRO [Concomitant]

REACTIONS (5)
  - AMNESIA [None]
  - DRUG ABUSER [None]
  - DRUG DEPENDENCE [None]
  - DRUG INTERACTION [None]
  - LOSS OF CONSCIOUSNESS [None]
